FAERS Safety Report 15207403 (Version 1)
Quarter: 2018Q3

REPORT INFORMATION
  Report Type: Spontaneous
  Country: RU (occurrence: RU)
  Receive Date: 20180727
  Receipt Date: 20180727
  Transmission Date: 20181010
  Serious: Yes (Other)
  Sender: FDA-Public Use
  Company Number: RU-BAYER-2018-138742

PATIENT
  Age: 69 Year
  Sex: Female

DRUGS (3)
  1. SIMVASTATIN. [Concomitant]
     Active Substance: SIMVASTATIN
     Dosage: 20 MG, UNK
  2. ACETYLSALICYLIC ACID({=100 MG) [Suspect]
     Active Substance: ASPIRIN
  3. BETAHISTINE [Concomitant]
     Active Substance: BETAHISTINE
     Dosage: 48 MG, UNK

REACTIONS (6)
  - Vestibulocerebellar syndrome [None]
  - Gastritis erosive [None]
  - Gastrooesophageal reflux disease [None]
  - Vascular encephalopathy [None]
  - Hypertension [None]
  - Transient ischaemic attack [None]
